FAERS Safety Report 7415461-3 (Version None)
Quarter: 2011Q2

REPORT INFORMATION
  Report Type: 
  Country: None (occurrence: None)
  Receive Date: 20110414
  Receipt Date: 20110401
  Transmission Date: 20111010
  Serious: Yes (Hospitalization, Other)
  Sender: FDA-Public Use
  Company Number: GB-JNJFOC-20110205891

PATIENT
  Age: 36 Year
  Sex: Female

DRUGS (8)
  1. LACOSAMIDE [Interacting]
     Route: 065
  2. PHENYTOIN [Interacting]
     Indication: EPILEPSY
     Route: 065
  3. OXCARBAZEPINE [Interacting]
     Route: 065
  4. OXCARBAZEPINE [Interacting]
     Indication: EPILEPSY
     Route: 065
  5. OXCARBAZEPINE [Interacting]
     Route: 065
  6. LACOSAMIDE [Interacting]
     Indication: EPILEPSY
     Route: 065
  7. LACOSAMIDE [Interacting]
     Route: 065
  8. TOPIRAMATE [Suspect]
     Indication: EPILEPSY
     Route: 048

REACTIONS (5)
  - DIPLOPIA [None]
  - BALANCE DISORDER [None]
  - NEUROTOXICITY [None]
  - CONVULSION [None]
  - DRUG INTERACTION [None]
